FAERS Safety Report 4368397-9 (Version None)
Quarter: 2004Q2

REPORT INFORMATION
  Report Type: 
  Country: None (occurrence: None)
  Receive Date: 20040525
  Receipt Date: 20040517
  Transmission Date: 20050107
  Serious: Yes (Death)
  Sender: FDA-Public Use
  Company Number: 2004-116052-NL

PATIENT
  Age: 72 Year
  Sex: Male

DRUGS (5)
  1. DANAPAROID SODIUM [Suspect]
     Indication: DISSEMINATED INTRAVASCULAR COAGULATION
     Dosage: 2500 ANTI_XA INTRAVENOUS (NOS)
     Route: 042
     Dates: start: 20040513, end: 20040516
  2. ELASPOL [Concomitant]
  3. ALBUMIN (HUMAN) [Concomitant]
  4. IMMUNOGLOBULIN HUMAN NORMAL [Concomitant]
  5. MEROPENEM [Concomitant]

REACTIONS (7)
  - BLOOD BILIRUBIN INCREASED [None]
  - HAEMOGLOBIN DECREASED [None]
  - HEPATIC FUNCTION ABNORMAL [None]
  - PLATELET COUNT INCREASED [None]
  - PNEUMOTHORAX [None]
  - RENAL IMPAIRMENT [None]
  - WHITE BLOOD CELL COUNT INCREASED [None]
